FAERS Safety Report 13022213 (Version 11)
Quarter: 2021Q1

REPORT INFORMATION
  Report Type: Spontaneous
  Country: US (occurrence: US)
  Receive Date: 20161213
  Receipt Date: 20210211
  Transmission Date: 20210419
  Serious: Yes (Other)
  Sender: FDA-Public Use
  Company Number: US-PFIZER INC-2016568951

PATIENT
  Age: 67 Year
  Sex: Female
  Weight: 64.85 kg

DRUGS (11)
  1. LYRICA [Suspect]
     Active Substance: PREGABALIN
     Indication: PARAESTHESIA
     Dosage: 225 MG, UNK
  2. LYRICA [Suspect]
     Active Substance: PREGABALIN
     Dosage: 325 MG, DAILY
  3. OMEPRAZOLE. [Concomitant]
     Active Substance: OMEPRAZOLE
     Dosage: 20 MG, UNK
     Dates: start: 2013
  4. LYRICA [Suspect]
     Active Substance: PREGABALIN
     Dosage: UNK
  5. LOSARTAN POTASSIUM. [Concomitant]
     Active Substance: LOSARTAN POTASSIUM
     Indication: BLOOD PRESSURE ABNORMAL
     Dosage: 12.5 MG, 1X/DAY
     Dates: start: 2010
  6. LYRICA [Suspect]
     Active Substance: PREGABALIN
     Dosage: 275 MG, DAILY
  7. LYRICA [Suspect]
     Active Substance: PREGABALIN
     Indication: NEURALGIA
     Dosage: 225 MG, 1X/DAY
     Route: 048
     Dates: start: 20151025
  8. LYRICA [Suspect]
     Active Substance: PREGABALIN
     Indication: DYSAESTHESIA
     Dosage: 225 MG, UNK
     Dates: start: 201510
  9. BUSPIRONE [Concomitant]
     Active Substance: BUSPIRONE HYDROCHLORIDE
     Indication: ANXIETY
     Dosage: UNK
     Dates: start: 201510
  10. LYRICA [Suspect]
     Active Substance: PREGABALIN
     Dosage: 225 MG, 1X/DAY (NIGHTLY)
     Route: 048
     Dates: start: 20170906
  11. LEVOTHYROXINE. [Concomitant]
     Active Substance: LEVOTHYROXINE
     Indication: THYROID DISORDER
     Dosage: 75 UG, UNK
     Dates: start: 1989

REACTIONS (12)
  - Injury [Unknown]
  - Somnolence [Unknown]
  - Drug withdrawal syndrome [Unknown]
  - Weight increased [Recovered/Resolved]
  - Lupus-like syndrome [Unknown]
  - Overdose [Unknown]
  - Stress [Unknown]
  - Burning mouth syndrome [Unknown]
  - Burning sensation [Unknown]
  - Drug ineffective [Recovered/Resolved]
  - Malaise [Unknown]
  - Erythema [Unknown]

NARRATIVE: CASE EVENT DATE: 201609
